FAERS Safety Report 25419905 (Version 1)
Quarter: 2025Q2

REPORT INFORMATION
  Report Type: Spontaneous
  Country: US (occurrence: US)
  Receive Date: 20250610
  Receipt Date: 20250610
  Transmission Date: 20250717
  Serious: No
  Sender: SANOFI AVENTIS
  Company Number: US-SA-2025SA163582

PATIENT
  Age: 91 Year
  Sex: Female

DRUGS (1)
  1. KEVZARA [Suspect]
     Active Substance: SARILUMAB
     Indication: Ankylosing spondylitis
     Dosage: UNK, QOW
     Route: 058

REACTIONS (1)
  - Product use in unapproved indication [Unknown]
